FAERS Safety Report 8061924-X (Version None)
Quarter: 2012Q1

REPORT INFORMATION
  Report Type: 
  Country: None (occurrence: None)
  Receive Date: 20120117
  Receipt Date: 20120110
  Transmission Date: 20120608
  Serious: Yes (Other)
  Sender: FDA-Public Use
  Company Number: TPA2012A00211

PATIENT

DRUGS (1)
  1. ACTOS [Suspect]
     Indication: TYPE 2 DIABETES MELLITUS

REACTIONS (6)
  - GASTROINTESTINAL DISORDER [None]
  - DECREASED APPETITE [None]
  - ABDOMINAL PAIN [None]
  - BLOOD URINE PRESENT [None]
  - WEIGHT DECREASED [None]
  - BLADDER CANCER [None]
